FAERS Safety Report 10478976 (Version 2)
Quarter: 2014Q3

REPORT INFORMATION
  Report Type: Report from Study
  Country: US (occurrence: US)
  Receive Date: 20140926
  Receipt Date: 20140926
  Transmission Date: 20150326
  Serious: Yes (Death, Hospitalization)
  Sender: FDA-Public Use
  Company Number: US-009507513-1405USA015652

PATIENT
  Age: 47 Year
  Sex: Male

DRUGS (26)
  1. THIOCTIC ACID [Concomitant]
     Active Substance: .ALPHA.-LIPOIC ACID, (+/-)-
     Dosage: 600 MG, QD
     Route: 048
  2. METOCLOPRAMIDE. [Concomitant]
     Active Substance: METOCLOPRAMIDE
     Indication: VOMITING
  3. HYDROMORPHONE [Concomitant]
     Active Substance: HYDROMORPHONE
     Indication: PAIN
     Dosage: EVERY 4 HOURS AS NEEDED
     Route: 048
  4. CYANOCOBALAMIN. [Concomitant]
     Active Substance: CYANOCOBALAMIN
     Indication: ROUTINE HEALTH MAINTENANCE
     Dosage: 1 DAILY
     Route: 048
  5. AMOXICILLIN. [Concomitant]
     Active Substance: AMOXICILLIN
     Dosage: 1 TABLET, BID. 20MG DAILY; STRENGTH 875-125MG
     Route: 048
  6. FLAXSEED [Concomitant]
     Active Substance: FLAX SEED
     Dosage: AS DIRECTED 1 CAP 2 X DAILY
     Route: 048
  7. KYTRIL [Concomitant]
     Active Substance: GRANISETRON HYDROCHLORIDE
     Indication: NAUSEA
  8. LACTOBACILLUS ACIDOPHILUS [Concomitant]
     Active Substance: LACTOBACILLUS ACIDOPHILUS
     Dosage: 1000000000 UNIT DAILY
     Route: 048
  9. METHADONE HYDROCHLORIDE. [Concomitant]
     Active Substance: METHADONE HYDROCHLORIDE
     Indication: PAIN
     Dosage: 1 TABLET, Q8H; DAILY DOSE:90 UNIT UNKNOWN
     Route: 048
  10. LACTULOSE. [Concomitant]
     Active Substance: LACTULOSE
     Dosage: STRENGHT 10 GRAM/1R ML, TID, SOLUTION, FREQUENCY: 30 ML 3XDAILY; TOTAL DAILY DOSE: 90 UNITS UNKNOWN
     Route: 048
  11. PEMBROLIZUMAB. [Suspect]
     Active Substance: PEMBROLIZUMAB
     Indication: MALIGNANT MELANOMA
     Dosage: 2 MG/KG (TOTAL DAILY DOSE: 308,UNITS NOT PROVIDED)
     Route: 042
     Dates: start: 20140514, end: 20140514
  12. ALBUTEROL SULFATE. [Concomitant]
     Active Substance: ALBUTEROL SULFATE
     Dosage: 2 PUFFS, 4 TIMES DAILY AS NEEDED
     Route: 055
  13. PRILOSEC [Concomitant]
     Active Substance: OMEPRAZOLE MAGNESIUM
     Dosage: 20 MG, QD
     Route: 048
  14. UBIDECARENONE [Concomitant]
     Active Substance: UBIDECARENONE
     Dosage: TOTAL DAILY DOSE: 200 MG DAILY
     Route: 048
  15. MILK THISTLE [Concomitant]
     Active Substance: MILK THISTLE
     Indication: ROUTINE HEALTH MAINTENANCE
     Dosage: 500 MG, BID
     Route: 048
  16. DOCUSATE SODIUM (+) SENNA [Concomitant]
     Indication: CONSTIPATION
     Dosage: 1-2 TABLETS AS NEEDED
     Route: 048
  17. VITAMINS (UNSPECIFIED) [Concomitant]
     Active Substance: VITAMINS
     Indication: ROUTINE HEALTH MAINTENANCE
     Dosage: 1 DAILY
     Route: 048
  18. LEVOTHYROXINE SODIUM. [Concomitant]
     Active Substance: LEVOTHYROXINE SODIUM
     Dosage: 125MCG, QD
     Route: 048
  19. CHOLECALCIFEROL [Concomitant]
     Active Substance: CHOLECALCIFEROL
     Indication: ROUTINE HEALTH MAINTENANCE
     Dosage: TOTAL DAILY DOSE: 2000 UNIT
     Route: 048
  20. LIDOCAINE (+) PRILOCAINE [Concomitant]
     Dosage: UNK, PRN
     Route: 061
  21. ZINC (UNSPECIFIED) [Concomitant]
     Indication: ROUTINE HEALTH MAINTENANCE
     Dosage: 50 MG, QD
     Route: 048
  22. ADVAIR HFA [Concomitant]
     Active Substance: FLUTICASONE PROPIONATE\SALMETEROL XINAFOATE
     Dosage: 1 PUFF, BID; STRENGTH 250-50MCG
     Route: 055
  23. LORAZEPAM. [Concomitant]
     Active Substance: LORAZEPAM
     Indication: ANXIETY
     Dosage: 1000000000 UNIT DAILY
     Route: 048
  24. MAGNESIUM (UNSPECIFIED) [Concomitant]
     Active Substance: MAGNESIUM
     Dosage: 500 MCG 1 DAILY
     Route: 048
  25. METOCLOPRAMIDE. [Concomitant]
     Active Substance: METOCLOPRAMIDE
     Indication: NAUSEA
     Dosage: 1 TABLET 4 TIMES DAILY
     Route: 048
  26. KYTRIL [Concomitant]
     Active Substance: GRANISETRON HYDROCHLORIDE
     Indication: VOMITING
     Dosage: UNK, Q12H; DAILY DOSE 2MG
     Route: 048

REACTIONS (7)
  - Dehydration [Not Recovered/Not Resolved]
  - Fall [Not Recovered/Not Resolved]
  - Anaemia [Unknown]
  - Asthenia [Not Recovered/Not Resolved]
  - Renal failure acute [Not Recovered/Not Resolved]
  - Neoplasm malignant [Fatal]
  - Abdominal pain [Not Recovered/Not Resolved]

NARRATIVE: CASE EVENT DATE: 20140526
